FAERS Safety Report 17060082 (Version 1)
Quarter: 2019Q4

REPORT INFORMATION
  Report Type: Spontaneous
  Country: US (occurrence: US)
  Receive Date: 20191121
  Receipt Date: 20191121
  Transmission Date: 20200122
  Serious: Yes (Other)
  Sender: FDA-Public Use
  Company Number: US-NOVOPROD-654598

PATIENT
  Sex: Male

DRUGS (1)
  1. NOVOLOG [Suspect]
     Active Substance: INSULIN ASPART
     Indication: TYPE 1 DIABETES MELLITUS
     Dosage: 1 UNIT PER 30 GRAMS OF CARBOHYDRATES (INJECTED 7 UNITS AT TIME OF EVENT BASED ON CARB INTAKE)
     Route: 058
     Dates: start: 20190201

REACTIONS (2)
  - Drug effect faster than expected [Unknown]
  - Hypoglycaemic unconsciousness [Recovered/Resolved]

NARRATIVE: CASE EVENT DATE: 20190322
